FAERS Safety Report 5479664-X (Version None)
Quarter: 2007Q4

REPORT INFORMATION
  Report Type: 
  Country: None (occurrence: None)
  Receive Date: 20071008
  Receipt Date: 20071005
  Transmission Date: 20080405
  Serious: Yes (Other)
  Sender: FDA-Public Use
  Company Number: B0489066A

PATIENT
  Age: 56 Year

DRUGS (4)
  1. VALTREX [Suspect]
     Indication: HERPES ZOSTER
     Dosage: 500MG TWICE PER DAY
     Route: 048
     Dates: start: 20050914, end: 20050916
  2. METHYCOBAL [Concomitant]
     Route: 065
  3. MUCOSTA [Concomitant]
     Route: 048
  4. ARASENA-A [Concomitant]
     Route: 061

REACTIONS (5)
  - DYSARTHRIA [None]
  - DYSLALIA [None]
  - DYSSTASIA [None]
  - ENCEPHALOPATHY [None]
  - MALAISE [None]
